FAERS Safety Report 26037877 (Version 1)
Quarter: 2025Q4

REPORT INFORMATION
  Report Type: Spontaneous
  Country: US (occurrence: US)
  Receive Date: 20251112
  Receipt Date: 20251112
  Transmission Date: 20260117
  Serious: Yes (Life-Threatening)
  Sender: BRACCO
  Company Number: US-BRACCO-2025US05420

PATIENT
  Age: 44 Year
  Sex: Male

DRUGS (3)
  1. LUMASON [Suspect]
     Active Substance: SULFUR HEXAFLUORIDE
     Indication: Echocardiogram
     Dosage: 4 ML, SINGLE
     Route: 042
     Dates: start: 20250802, end: 20250802
  2. LUMASON [Suspect]
     Active Substance: SULFUR HEXAFLUORIDE
     Indication: Echocardiogram
     Dosage: 4 ML, SINGLE
     Route: 042
     Dates: start: 20250802, end: 20250802
  3. LUMASON [Suspect]
     Active Substance: SULFUR HEXAFLUORIDE
     Indication: Echocardiogram
     Dosage: 4 ML, SINGLE
     Route: 042
     Dates: start: 20250802, end: 20250802

REACTIONS (1)
  - Contrast media allergy [Recovered/Resolved]

NARRATIVE: CASE EVENT DATE: 20250802
